FAERS Safety Report 9359233 (Version 1)
Quarter: 2013Q2

REPORT INFORMATION
  Report Type: Spontaneous
  Country: US (occurrence: US)
  Receive Date: 20130620
  Receipt Date: 20130620
  Transmission Date: 20140414
  Serious: Yes (Other)
  Sender: FDA-Public Use
  Company Number: US-PFIZER INC-2013183245

PATIENT
  Sex: Male
  Weight: 118 kg

DRUGS (1)
  1. ALPRAZOLAM [Suspect]
     Indication: ANXIETY
     Dosage: 12 MG, IN A DAY
     Route: 048

REACTIONS (2)
  - Drug administration error [Unknown]
  - Weight increased [Unknown]
